FAERS Safety Report 14994126 (Version 1)
Quarter: 2018Q2

REPORT INFORMATION
  Report Type: Spontaneous
  Country: FR (occurrence: FR)
  Receive Date: 20180611
  Receipt Date: 20180611
  Transmission Date: 20180711
  Serious: Yes (Life-Threatening)
  Sender: FDA-Public Use
  Company Number: FR-TEVA-2018-FR-904931

PATIENT
  Age: 29 Year
  Sex: Female
  Weight: 50 kg

DRUGS (2)
  1. METHOTREXATE. [Suspect]
     Active Substance: METHOTREXATE
     Indication: PROPHYLAXIS AGAINST GRAFT VERSUS HOST DISEASE
     Dosage: 02/03, 04 / 03,07 / 03 AND 12/03/2018
     Route: 042
     Dates: start: 20180302, end: 20180312
  2. ENDOXAN [Suspect]
     Active Substance: CYCLOPHOSPHAMIDE
     Indication: BONE MARROW TRANSPLANT
     Dosage: 2820 MILLIGRAM DAILY;
     Route: 042
     Dates: start: 20180226, end: 20180227

REACTIONS (1)
  - Venoocclusive liver disease [Recovered/Resolved with Sequelae]

NARRATIVE: CASE EVENT DATE: 20180320
